FAERS Safety Report 8666527 (Version 2)
Quarter: 2013Q3

REPORT INFORMATION
  Report Type: Spontaneous
  Country: JP (occurrence: JP)
  Receive Date: 20120716
  Receipt Date: 20130816
  Transmission Date: 20140515
  Serious: Yes (Life-Threatening)
  Sender: FDA-Public Use
  Company Number: JP-ASTRAZENECA-2012SE43423

PATIENT
  Age: 34 Year
  Sex: Female

DRUGS (2)
  1. DIPRIVAN [Suspect]
     Indication: GENERAL ANAESTHESIA
     Dosage: DOSE UNKNOWN
     Route: 042
     Dates: start: 201206, end: 201206
  2. ESLAX [Suspect]
     Dosage: DOSE UNKNOWN
     Route: 065
     Dates: start: 201206

REACTIONS (1)
  - Anaphylactic shock [Recovered/Resolved]
